FAERS Safety Report 7104589-3 (Version None)
Quarter: 2010Q4

REPORT INFORMATION
  Report Type: 
  Country: None (occurrence: None)
  Receive Date: 20101109
  Receipt Date: 20101028
  Transmission Date: 20110411
  Serious: Yes (Hospitalization)
  Sender: FDA-Public Use
  Company Number: US-003901

PATIENT
  Sex: Male
  Weight: 89.8122 kg

DRUGS (7)
  1. DEGARELIX (240 MG, 80 MG) [Suspect]
     Indication: PROSTATE CANCER
     Dosage: (240 MG 1X), (80 MG 1X/MONTH SUBCUTANEOUS)
     Route: 058
     Dates: start: 20100302, end: 20100302
  2. DEGARELIX (240 MG, 80 MG) [Suspect]
     Indication: PROSTATE CANCER
     Dosage: (240 MG 1X), (80 MG 1X/MONTH SUBCUTANEOUS)
     Route: 058
     Dates: start: 20100330, end: 20100921
  3. GONADOTROPIN-RELEASING HORMONES [Suspect]
     Indication: PROSTATE CANCER
  4. NADOLOL [Concomitant]
  5. PANTOPRAZOL RATIOPHARM [Concomitant]
  6. SILYBUM MARIANUM [Concomitant]
  7. MULTI-VITAMINS [Concomitant]

REACTIONS (6)
  - ASTHENIA [None]
  - CHILLS [None]
  - NAUSEA [None]
  - PYREXIA [None]
  - SOMNOLENCE [None]
  - VOMITING [None]
